FAERS Safety Report 18105324 (Version 5)
Quarter: 2025Q2

REPORT INFORMATION
  Report Type: Spontaneous
  Country: US (occurrence: US)
  Receive Date: 20200804
  Receipt Date: 20250616
  Transmission Date: 20250717
  Serious: Yes (Life-Threatening, Other)
  Sender: CSL BEHRING
  Company Number: US-BEH-2020120817

PATIENT
  Age: 56 Year
  Sex: Female

DRUGS (3)
  1. ZEMAIRA [Suspect]
     Active Substance: .ALPHA.1-PROTEINASE INHIBITOR HUMAN
     Indication: Alpha-1 antitrypsin deficiency
     Route: 065
     Dates: start: 2012
  2. ZEMAIRA [Suspect]
     Active Substance: .ALPHA.1-PROTEINASE INHIBITOR HUMAN
     Route: 065
     Dates: start: 20200618
  3. ZEMAIRA [Suspect]
     Active Substance: .ALPHA.1-PROTEINASE INHIBITOR HUMAN
     Dosage: 1000.0MCG, BIW
     Route: 042
     Dates: start: 20170101, end: 20240531

REACTIONS (21)
  - Lung disorder [Unknown]
  - Alpha-1 antitrypsin deficiency [Unknown]
  - Choking [Unknown]
  - Insurance issue [Unknown]
  - Chest pain [Unknown]
  - Musculoskeletal chest pain [Unknown]
  - Insurance issue [Unknown]
  - Dyspnoea [Unknown]
  - Insurance issue [Unknown]
  - Dyspnoea [Unknown]
  - Fatigue [Unknown]
  - Insurance issue [Unknown]
  - Insurance issue [Unknown]
  - Headache [Unknown]
  - Dizziness [Unknown]
  - Confusional state [Unknown]
  - Viral infection [Unknown]
  - Illness [Unknown]
  - Malaise [Unknown]
  - Product prescribing error [Recovering/Resolving]
  - Klebsiella infection [Unknown]

NARRATIVE: CASE EVENT DATE: 20180613
